FAERS Safety Report 4821768-6 (Version None)
Quarter: 2005Q4

REPORT INFORMATION
  Report Type: 
  Country: None (occurrence: None)
  Receive Date: 20051107
  Receipt Date: 20050524
  Transmission Date: 20060501
  Serious: Yes (Other)
  Sender: FDA-Public Use
  Company Number: US-AMGEN-US129977

PATIENT
  Sex: Male
  Weight: 83.5 kg

DRUGS (5)
  1. PROCRIT [Suspect]
     Indication: MYELODYSPLASTIC SYNDROME
     Route: 058
     Dates: start: 20040124, end: 20040315
  2. BLOOD CELLS, PACKED HUMAN [Concomitant]
  3. LEVOTHYROXINE [Concomitant]
  4. HYDROCODONE [Concomitant]
  5. ATIVAN [Concomitant]

REACTIONS (4)
  - APLASIA PURE RED CELL [None]
  - DRUG INEFFECTIVE [None]
  - DYSURIA [None]
  - PYREXIA [None]
